FAERS Safety Report 24091304 (Version 1)
Quarter: 2024Q3

REPORT INFORMATION
  Report Type: Spontaneous
  Country: US (occurrence: US)
  Receive Date: 20240715
  Receipt Date: 20240715
  Transmission Date: 20241016
  Serious: Yes (Death, Other)
  Sender: INCYTE
  Company Number: US-INCYTE CORPORATION-2024IN007365

PATIENT

DRUGS (3)
  1. JAKAFI [Suspect]
     Active Substance: RUXOLITINIB
     Indication: Haemochromatosis
     Dosage: 20 MILLIGRAM, BID
     Route: 048
     Dates: start: 202211
  2. JAKAFI [Suspect]
     Active Substance: RUXOLITINIB
     Indication: Anaemia
  3. DEFERASIROX [Concomitant]
     Active Substance: DEFERASIROX
     Indication: Haemochromatosis
     Dosage: UNK
     Route: 048

REACTIONS (2)
  - Death [Fatal]
  - Off label use [Unknown]

NARRATIVE: CASE EVENT DATE: 20221101
